FAERS Safety Report 23811938 (Version 1)
Quarter: 2024Q2

REPORT INFORMATION
  Report Type: Spontaneous
  Country: US (occurrence: US)
  Receive Date: 20240503
  Receipt Date: 20240503
  Transmission Date: 20240715
  Serious: No
  Sender: FDA-Public Use
  Company Number: US-UCBSA-2023029051

PATIENT
  Sex: Female

DRUGS (3)
  1. CIMZIA [Suspect]
     Active Substance: CERTOLIZUMAB PEGOL
     Indication: Psoriasis
     Dosage: 400 MILLIGRAM, OTHER
     Route: 058
  2. CIMZIA [Suspect]
     Active Substance: CERTOLIZUMAB PEGOL
     Dosage: 30 MILLIGRAM, 2X/DAY (BID)
     Route: 058
     Dates: start: 20230607
  3. OTEZLA [Suspect]
     Active Substance: APREMILAST
     Indication: Product used for unknown indication
     Dosage: UNK

REACTIONS (7)
  - Decreased appetite [Unknown]
  - Weight decreased [Unknown]
  - Neuralgia [Unknown]
  - Fibromyalgia [Unknown]
  - Nervous system disorder [Unknown]
  - Incorrect dose administered [Unknown]
  - Duplicate therapy error [Unknown]

NARRATIVE: CASE EVENT DATE: 20230101
